FAERS Safety Report 6515641-5 (Version None)
Quarter: 2009Q4

REPORT INFORMATION
  Report Type: 
  Country: None (occurrence: None)
  Receive Date: 20091223
  Receipt Date: 20091215
  Transmission Date: 20100525
  Serious: Yes (Other)
  Sender: FDA-Public Use
  Company Number: US-JNJFOC-20091204989

PATIENT
  Sex: Female
  Weight: 49.9 kg

DRUGS (3)
  1. REMICADE [Suspect]
     Indication: COLITIS ULCERATIVE
     Route: 042
  2. VALIUM [Concomitant]
  3. BENADRYL [Concomitant]

REACTIONS (3)
  - MALAISE [None]
  - TINNITUS [None]
  - VITREOUS FLOATERS [None]
